FAERS Safety Report 23873748 (Version 1)
Quarter: 2024Q2

REPORT INFORMATION
  Report Type: Report from Study
  Country: CA (occurrence: CA)
  Receive Date: 20240520
  Receipt Date: 20240520
  Transmission Date: 20240716
  Serious: Yes (Other)
  Sender: FDA-Public Use
  Company Number: CA-SAMSUNG BIOEPIS-SB-2024-14951

PATIENT
  Age: 69 Year
  Sex: Female

DRUGS (1)
  1. BYOOVIZ [Suspect]
     Active Substance: RANIBIZUMAB-NUNA
     Indication: Neovascular age-related macular degeneration
     Dosage: 10 MG/ML
     Route: 031
     Dates: start: 20240508

REACTIONS (2)
  - Blindness transient [Unknown]
  - Pain [Unknown]

NARRATIVE: CASE EVENT DATE: 20240508
